FAERS Safety Report 7814120-2 (Version None)
Quarter: 2011Q4

REPORT INFORMATION
  Report Type: 
  Country: None (occurrence: None)
  Receive Date: 20111014
  Receipt Date: 20111006
  Transmission Date: 20120403
  Serious: Yes (Other)
  Sender: FDA-Public Use
  Company Number: JP-ASTELLAS-2011JP006383

PATIENT
  Sex: Female
  Weight: 57.3 kg

DRUGS (4)
  1. FAMOTIDINE [Concomitant]
     Indication: GASTRIC ULCER
     Dosage: 20 MG, UID/QD
     Route: 048
     Dates: start: 20100501
  2. DEPAS [Concomitant]
     Indication: NEUROSIS
     Dosage: 0.5 MG, UID/QD
     Route: 048
     Dates: start: 20100501
  3. EBRANTIL [Concomitant]
     Indication: NEUROGENIC BLADDER
     Dosage: 30 MG, UID/QD
     Route: 048
     Dates: start: 20100614
  4. VESICARE [Suspect]
     Indication: NEUROGENIC BLADDER
     Dosage: 10 MG, UID/QD
     Route: 048
     Dates: start: 20100614, end: 20110903

REACTIONS (1)
  - DEMENTIA [None]
